FAERS Safety Report 4449485-5 (Version None)
Quarter: 2004Q3

REPORT INFORMATION
  Report Type: 
  Country: None (occurrence: None)
  Receive Date: 20040910
  Receipt Date: 20040910
  Transmission Date: 20050211
  Serious: Yes (Hospitalization)
  Sender: FDA-Public Use
  Company Number: None

PATIENT
  Sex: Female
  Weight: 68.0396 kg

DRUGS (9)
  1. CISPLATIN [Suspect]
  2. LORTAB [Concomitant]
  3. DURAGESIC [Concomitant]
  4. PHENERGAN HCL [Concomitant]
  5. GMCSF [Concomitant]
  6. CISPLATIN [Concomitant]
  7. ZOFRAN [Concomitant]
  8. MANNITOL [Concomitant]
  9. PROCRIT [Concomitant]

REACTIONS (4)
  - ASTHENIA [None]
  - DIZZINESS [None]
  - MARKEDLY REDUCED DIETARY INTAKE [None]
  - VOMITING [None]
